FAERS Safety Report 16701672 (Version 1)
Quarter: 2019Q3

REPORT INFORMATION
  Report Type: Spontaneous
  Country: GB (occurrence: GB)
  Receive Date: 20190814
  Receipt Date: 20190814
  Transmission Date: 20191004
  Serious: Yes (Hospitalization, Other)
  Sender: FDA-Public Use
  Company Number: GB-PFIZER INC-2019344592

PATIENT
  Age: 43 Year
  Sex: Male

DRUGS (2)
  1. AXITINIB [Suspect]
     Active Substance: AXITINIB
     Dosage: UNK
     Dates: start: 201609
  2. SUNITINIB MALATE. [Suspect]
     Active Substance: SUNITINIB MALATE
     Dosage: UNK
     Dates: start: 201609

REACTIONS (14)
  - Diarrhoea [Unknown]
  - Haemoptysis [Unknown]
  - Rash [Unknown]
  - Liver function test abnormal [Unknown]
  - Cardiac failure [Unknown]
  - Neoplasm progression [Unknown]
  - Lower respiratory tract infection [Unknown]
  - Fatigue [Unknown]
  - Arthralgia [Unknown]
  - Hypotension [Unknown]
  - Yellow skin [Unknown]
  - Hypothyroidism [Unknown]
  - Musculoskeletal pain [Unknown]
  - Palmar-plantar erythrodysaesthesia syndrome [Unknown]

NARRATIVE: CASE EVENT DATE: 2016
